FAERS Safety Report 14281623 (Version 2)
Quarter: 2018Q4

REPORT INFORMATION
  Report Type: Spontaneous
  Country: US (occurrence: US)
  Receive Date: 20171213
  Receipt Date: 20181011
  Transmission Date: 20190204
  Serious: No
  Sender: FDA-Public Use
  Company Number: US-PFIZER INC-2017531302

PATIENT
  Age: 60 Year
  Sex: Female

DRUGS (8)
  1. IBRANCE [Suspect]
     Active Substance: PALBOCICLIB
     Dosage: 100 MG, CYCLIC [1 CAPSULE DAILY FOR THREE WEEKS (21 DAYS) OF A 28 DAY CYCLE]
  2. VITAMIN B12 [Concomitant]
     Active Substance: CYANOCOBALAMIN
     Dosage: UNK
  3. IBRANCE [Suspect]
     Active Substance: PALBOCICLIB
     Indication: BONE CANCER
     Dosage: 125 MG, UNK
  4. OXYCODONE [Concomitant]
     Active Substance: OXYCODONE
     Dosage: 5 MG, UNK
  5. ASPRIN [Concomitant]
     Active Substance: ASPIRIN
     Dosage: 80 MG, UNK
  6. CALCIUM W/VITAMIN D3 [Concomitant]
     Active Substance: CALCIUM\CHOLECALCIFEROL
     Dosage: UNK
  7. FASLODEX [Concomitant]
     Active Substance: FULVESTRANT
     Dosage: UNK UNK, MONTHLY; (ONCE A MONTH)
  8. IBUPROFEN. [Concomitant]
     Active Substance: IBUPROFEN
     Dosage: UNK

REACTIONS (10)
  - Movement disorder [Recovered/Resolved]
  - Glossodynia [Unknown]
  - White blood cell count decreased [Recovered/Resolved]
  - Chills [Recovered/Resolved]
  - Oropharyngeal pain [Unknown]
  - Pain in jaw [Unknown]
  - Fatigue [Unknown]
  - Product use in unapproved indication [Unknown]
  - Tonsillar disorder [Unknown]
  - Stomatitis [Unknown]

NARRATIVE: CASE EVENT DATE: 201806
